FAERS Safety Report 15933468 (Version 1)
Quarter: 2019Q1

REPORT INFORMATION
  Report Type: Spontaneous
  Country: US (occurrence: US)
  Receive Date: 20190207
  Receipt Date: 20190207
  Transmission Date: 20190417
  Serious: No
  Sender: FDA-Public Use
  Company Number: US-BAYER-2019-025929

PATIENT
  Age: 67 Year
  Sex: Male
  Weight: 88.9 kg

DRUGS (1)
  1. ALEVE [Suspect]
     Active Substance: NAPROXEN SODIUM
     Indication: DIABETIC NEUROPATHY

REACTIONS (1)
  - Drug ineffective for unapproved indication [None]
